FAERS Safety Report 18809653 (Version 1)
Quarter: 2021Q1

REPORT INFORMATION
  Report Type: Spontaneous
  Country: US (occurrence: US)
  Receive Date: 20210129
  Receipt Date: 20210129
  Transmission Date: 20210419
  Serious: Yes (Hospitalization)
  Sender: FDA-Public Use
  Company Number: US-FRESENIUS KABI-FK202100989

PATIENT
  Age: 53 Year
  Sex: Male

DRUGS (1)
  1. CISPLATIN (MANUFACTURER UNKNOWN) [Suspect]
     Active Substance: CISPLATIN
     Indication: TONSIL CANCER
     Route: 065

REACTIONS (3)
  - Clostridium difficile infection [Recovered/Resolved]
  - Colitis [Recovered/Resolved]
  - Appendicitis [Recovered/Resolved]
